FAERS Safety Report 7013100-7 (Version None)
Quarter: 2010Q3

REPORT INFORMATION
  Report Type: 
  Country: None (occurrence: None)
  Receive Date: 20100924
  Receipt Date: 20100914
  Transmission Date: 20110219
  Serious: Yes (Hospitalization, Other)
  Sender: FDA-Public Use
  Company Number: DE-AMGEN-QUU421951

PATIENT
  Sex: Female

DRUGS (10)
  1. NEULASTA [Suspect]
     Indication: CHEMOTHERAPY
     Dates: start: 20100619
  2. EPIRUBICIN [Concomitant]
     Dates: start: 20100617
  3. CYCLOPHOSPHAMIDE [Concomitant]
     Dates: start: 20100617
  4. ZOFRAN [Concomitant]
  5. FORTECORTIN [Concomitant]
  6. METOPROLOL TARTRATE [Concomitant]
  7. CANDESARTAN CILEXETIL [Concomitant]
  8. EUTHYROX [Concomitant]
  9. PANTOPRAZOLE SODIUM [Concomitant]
  10. CLEXANE [Concomitant]

REACTIONS (2)
  - FEBRILE NEUTROPENIA [None]
  - LEUKOPENIA [None]
